FAERS Safety Report 21518173 (Version 1)
Quarter: 2022Q4

REPORT INFORMATION
  Report Type: Report from Study
  Country: BR (occurrence: BR)
  Receive Date: 20221028
  Receipt Date: 20221028
  Transmission Date: 20230113
  Serious: Yes (Other)
  Sender: FDA-Public Use
  Company Number: BR-JNJFOC-20221040522

PATIENT
  Age: 68 Year
  Sex: Female
  Weight: 57 kg

DRUGS (1)
  1. INFLIXIMAB [Suspect]
     Active Substance: INFLIXIMAB
     Indication: Rheumatoid arthritis
     Dosage: 3 BOTTLES
     Route: 041
     Dates: start: 20170901

REACTIONS (6)
  - Sepsis [Unknown]
  - Uveitis [Unknown]
  - Cataract [Unknown]
  - Nosocomial infection [Unknown]
  - Weight decreased [Unknown]
  - Urinary tract infection [Unknown]

NARRATIVE: CASE EVENT DATE: 20220201
